FAERS Safety Report 9006480 (Version 1)
Quarter: 2013Q1

REPORT INFORMATION
  Report Type: Spontaneous
  Country: US (occurrence: US)
  Receive Date: 20130110
  Receipt Date: 20130110
  Transmission Date: 20140127
  Serious: No
  Sender: FDA-Public Use
  Company Number: US-PFIZER INC-2013009149

PATIENT
  Age: 59 Year
  Sex: Male
  Weight: 172 kg

DRUGS (5)
  1. NORVASC [Suspect]
     Indication: HYPERTENSION
     Dosage: 5 MG, 2X/DAY
     Dates: start: 201210
  2. JANUVIA [Concomitant]
     Dosage: 100 MG, DAILY
  3. BABY ASPIRIN [Concomitant]
     Dosage: 81 MG, DAILY
  4. HYDRODIURIL [Concomitant]
     Dosage: 25 MG, DAILY
  5. INSULIN [Concomitant]
     Dosage: 35 IU, DAILY

REACTIONS (1)
  - Vertigo [Not Recovered/Not Resolved]
